FAERS Safety Report 12209094 (Version 2)
Quarter: 2016Q1

REPORT INFORMATION
  Report Type: Spontaneous
  Country: DE (occurrence: DE)
  Receive Date: 20160324
  Receipt Date: 20160331
  Transmission Date: 20160526
  Serious: Yes (Congenital Anomaly, Other)
  Sender: FDA-Public Use
  Company Number: DE-PFIZER INC-2016170154

PATIENT
  Sex: Female

DRUGS (5)
  1. FLUANXOL [Suspect]
     Active Substance: FLUPENTIXOL
     Indication: ACUTE PSYCHOSIS
     Dosage: 2 MG, 2X/DAY
     Route: 064
     Dates: start: 20150220, end: 20150720
  2. ATOSIL [Suspect]
     Active Substance: PROMETHAZINE HYDROCHLORIDE
     Indication: ACUTE PSYCHOSIS
     Dosage: 50MG/D / IF REQUIRED, UNKNOWN HOW OFTEN, DOSAGE BETWEEN 50MG/D AND 30MG/D
     Route: 064
     Dates: start: 20150116, end: 20151004
  3. FEMIBION [Concomitant]
     Active Substance: VITAMINS
     Indication: PROPHYLAXIS OF NEURAL TUBE DEFECT
     Dosage: UNK
     Route: 064
     Dates: start: 20150413, end: 20151004
  4. SERTRALINE HCL [Suspect]
     Active Substance: SERTRALINE HYDROCHLORIDE
     Indication: ACUTE PSYCHOSIS
     Dosage: 100 MG, 1X/DAY
     Route: 064
     Dates: start: 20150220, end: 20151004
  5. CLOZAPINE. [Suspect]
     Active Substance: CLOZAPINE
     Indication: ACUTE PSYCHOSIS
     Dosage: 75 MG, 1X/DAY
     Route: 064
     Dates: start: 20150721, end: 20151004

REACTIONS (3)
  - Respiratory disorder neonatal [Recovered/Resolved]
  - Maternal exposure during pregnancy [Unknown]
  - Talipes [Unknown]

NARRATIVE: CASE EVENT DATE: 20151004
